FAERS Safety Report 4871084-1 (Version None)
Quarter: 2005Q4

REPORT INFORMATION
  Report Type: 
  Country: None (occurrence: None)
  Receive Date: 20051229
  Receipt Date: 20051216
  Transmission Date: 20060501
  Serious: Yes (Hospitalization)
  Sender: FDA-Public Use
  Company Number: 2005169714

PATIENT
  Age: 69 Year
  Sex: Male

DRUGS (6)
  1. ATORVASTATIN CALCIUM [Suspect]
     Indication: ILL-DEFINED DISORDER
  2. ATENOLOL [Suspect]
     Indication: ILL-DEFINED DISORDER
  3. AMITRIPTYLINE HYDROCHLORIDE [Suspect]
     Indication: ILL-DEFINED DISORDER
  4. ASPIRIN [Suspect]
     Indication: ILL-DEFINED DISORDER
  5. FELODIPINE [Suspect]
     Indication: ILL-DEFINED DISORDER
  6. RAMIPRIL [Suspect]
     Indication: HYPERTENSION
     Dates: start: 19980101

REACTIONS (5)
  - ANGIONEUROTIC OEDEMA [None]
  - DROOLING [None]
  - SWELLING FACE [None]
  - SWOLLEN TONGUE [None]
  - VOCAL CORD POLYPECTOMY [None]
